FAERS Safety Report 4634393-7 (Version None)
Quarter: 2005Q2

REPORT INFORMATION
  Report Type: 
  Country: None (occurrence: None)
  Receive Date: 20050411
  Receipt Date: 20050323
  Transmission Date: 20051028
  Serious: Yes (Hospitalization)
  Sender: FDA-Public Use
  Company Number: 2005SE02025

PATIENT
  Age: 73 Year
  Sex: Female

DRUGS (8)
  1. BLOPRESS [Suspect]
     Indication: HYPERTENSION
     Dosage: 4 MG QD PO
     Route: 048
     Dates: start: 20000629
  2. BLOPRESS [Suspect]
     Indication: HYPERTENSION
     Dosage: 8 MG QD PO
     Route: 048
     Dates: start: 20011004
  3. LOCHOL [Suspect]
     Indication: HYPERCHOLESTEROLAEMIA
     Dosage: 20 MG QD PO
     Route: 048
     Dates: start: 20010419
  4. LOPRESSOR [Suspect]
     Indication: HYPERTENSION
     Dosage: 60 MG QD PO
     Route: 048
     Dates: start: 19980817
  5. LANDEL [Suspect]
     Indication: HYPERTENSION
     Dosage: 40 MG QD PO
     Route: 048
     Dates: start: 19970526
  6. ALDACTONE [Suspect]
     Indication: HYPERTENSION
     Dosage: 1`2.5 MG QD PO
     Route: 048
     Dates: start: 20020913
  7. DORAL [Suspect]
  8. ACINON [Concomitant]

REACTIONS (2)
  - PANCREATITIS [None]
  - PANCREATOLITHIASIS [None]
